FAERS Safety Report 6718295-8 (Version None)
Quarter: 2010Q2

REPORT INFORMATION
  Report Type: 
  Country: None (occurrence: None)
  Receive Date: 20100510
  Receipt Date: 20100426
  Transmission Date: 20101027
  Serious: Yes (Other)
  Sender: FDA-Public Use
  Company Number: AR-AMGEN-QUU409724

PATIENT
  Age: 52 Year
  Sex: Female

DRUGS (2)
  1. ENBREL [Suspect]
     Indication: RHEUMATOID ARTHRITIS
     Route: 058
     Dates: start: 20091101, end: 20091101
  2. ENBREL [Suspect]
     Route: 058
     Dates: start: 20050101, end: 20091001

REACTIONS (1)
  - ULCERATIVE KERATITIS [None]
